FAERS Safety Report 5120221-2 (Version None)
Quarter: 2006Q3

REPORT INFORMATION
  Report Type: 
  Country: None (occurrence: None)
  Receive Date: 20060928
  Receipt Date: 20060918
  Transmission Date: 20061208
  Serious: Yes (Hospitalization)
  Sender: FDA-Public Use
  Company Number: 2006112626

PATIENT
  Age: 59 Year
  Sex: Male

DRUGS (2)
  1. FELDENE [Suspect]
     Indication: MENISCUS OPERATION
     Dosage: 40 MG (20 MG, 2 IN 1 D), INTRAMUSCULAR
     Route: 030
  2. MUSCORIL (THIOCOLCHICOSIDE) [Concomitant]

REACTIONS (5)
  - BLOOD PRESSURE DECREASED [None]
  - DUODENAL ULCER [None]
  - GASTRIC ULCER [None]
  - HAEMOGLOBIN DECREASED [None]
  - MELAENA [None]
